FAERS Safety Report 23565050 (Version 1)
Quarter: 2024Q1

REPORT INFORMATION
  Report Type: Spontaneous
  Country: US (occurrence: None)
  Receive Date: 20240223
  Receipt Date: 20240223
  Transmission Date: 20240410
  Serious: Yes (Other)
  Sender: FDA-Public Use
  Company Number: None

PATIENT
  Age: 31 Year
  Sex: Female
  Weight: 72 kg

DRUGS (5)
  1. FERAHEME [Suspect]
     Active Substance: FERUMOXYTOL NON-STOICHIOMETRIC MAGNETITE
     Indication: Magnetic resonance imaging
     Dosage: OTHER FREQUENCY : ONCE;?
     Route: 041
  2. LEVOTHYROXINE [Concomitant]
     Active Substance: LEVOTHYROXINE\LEVOTHYROXINE SODIUM
     Dates: start: 20140201
  3. EFFEXOR [Concomitant]
     Active Substance: VENLAFAXINE HYDROCHLORIDE
     Dates: start: 20200201
  4. GABAPENTIN [Concomitant]
     Active Substance: GABAPENTIN
     Dates: start: 20230801
  5. Junel Fe (Progestin/Estrogen combination) [Concomitant]

REACTIONS (10)
  - Dyspnoea [None]
  - Feeling hot [None]
  - Chest discomfort [None]
  - Head discomfort [None]
  - Erythema [None]
  - Infusion related reaction [None]
  - Off label use [None]
  - Magnetic resonance imaging [None]
  - Blood pressure diastolic increased [None]
  - Wheezing [None]

NARRATIVE: CASE EVENT DATE: 20240201
